FAERS Safety Report 16257477 (Version 1)
Quarter: 2019Q2

REPORT INFORMATION
  Report Type: Spontaneous
  Country: CA (occurrence: CA)
  Receive Date: 20190430
  Receipt Date: 20190430
  Transmission Date: 20190711
  Serious: Yes (Other)
  Sender: FDA-Public Use
  Company Number: CA-SA-2019SA110716

PATIENT
  Sex: Female

DRUGS (7)
  1. HUMIRA [Suspect]
     Active Substance: ADALIMUMAB
     Indication: RHEUMATOID ARTHRITIS
     Dosage: UNK
     Route: 058
  2. CIMZIA [Suspect]
     Active Substance: CERTOLIZUMAB PEGOL
     Indication: RHEUMATOID ARTHRITIS
     Dosage: UNK
     Route: 058
  3. ARAVA [Suspect]
     Active Substance: LEFLUNOMIDE
     Indication: PRODUCT USED FOR UNKNOWN INDICATION
     Route: 065
  4. LEFLUNOMIDE. [Suspect]
     Active Substance: LEFLUNOMIDE
     Indication: RHEUMATOID ARTHRITIS
     Dosage: 20 MG, QD
     Route: 048
  5. METHOTREXATE. [Suspect]
     Active Substance: METHOTREXATE
     Indication: RHEUMATOID ARTHRITIS
     Route: 065
  6. CELECOXIB. [Suspect]
     Active Substance: CELECOXIB
     Indication: RHEUMATOID ARTHRITIS
     Dosage: 1 DF, QD
     Route: 048
  7. PREDNISONE ACETATE [Concomitant]
     Active Substance: PREDNISONE ACETATE
     Indication: CROHN^S DISEASE

REACTIONS (6)
  - Blood pressure decreased [Unknown]
  - Peripheral vascular disorder [Unknown]
  - Systemic lupus erythematosus [Unknown]
  - Loss of consciousness [Unknown]
  - Diarrhoea [Unknown]
  - Drug ineffective [Unknown]
